FAERS Safety Report 4950274-3 (Version None)
Quarter: 2006Q1

REPORT INFORMATION
  Report Type: 
  Country: None (occurrence: None)
  Receive Date: 20060316
  Receipt Date: 20060228
  Transmission Date: 20060701
  Serious: Yes (Life-Threatening)
  Sender: FDA-Public Use
  Company Number: 222943

PATIENT
  Age: 57 Year
  Sex: Female
  Weight: 49 kg

DRUGS (1)
  1. HERCEPTIN [Suspect]
     Indication: BREAST CANCER
     Dosage: 197 MG QD INTRAVENOUS
     Route: 042
     Dates: start: 20050608, end: 20050608

REACTIONS (6)
  - DYSPNOEA [None]
  - EMOTIONAL DISTRESS [None]
  - HYPERTENSION [None]
  - HYPOXIA [None]
  - PAIN [None]
  - TACHYCARDIA [None]
